FAERS Safety Report 4923444-8 (Version None)
Quarter: 2006Q1

REPORT INFORMATION
  Report Type: 
  Country: None (occurrence: None)
  Receive Date: 20060227
  Receipt Date: 20060215
  Transmission Date: 20060701
  Serious: Yes (Other)
  Sender: FDA-Public Use
  Company Number: US-JNJFOC-20060204082

PATIENT
  Sex: Male
  Weight: 76.66 kg

DRUGS (1)
  1. TOPAMAX [Suspect]
     Route: 048

REACTIONS (9)
  - CONFUSIONAL STATE [None]
  - DECREASED APPETITE [None]
  - DISTURBANCE IN ATTENTION [None]
  - HALLUCINATION [None]
  - HEPATITIS C [None]
  - INSOMNIA [None]
  - PARAESTHESIA [None]
  - SEXUAL DYSFUNCTION [None]
  - THINKING ABNORMAL [None]
